FAERS Safety Report 5587362-7 (Version None)
Quarter: 2007Q4

REPORT INFORMATION
  Report Type: 
  Country: None (occurrence: None)
  Receive Date: 20071207
  Receipt Date: 20061026
  Transmission Date: 20080405
  Serious: Yes (Other)
  Sender: FDA-Public Use
  Company Number: 2006132938

PATIENT
  Sex: Male

DRUGS (1)
  1. VIAGRA [Suspect]

REACTIONS (4)
  - FEELING HOT [None]
  - FLUSHING [None]
  - HEART RATE INCREASED [None]
  - MYOCARDIAL INFARCTION [None]
